FAERS Safety Report 25763143 (Version 1)
Quarter: 2025Q3

REPORT INFORMATION
  Report Type: Spontaneous
  Country: EU (occurrence: EU)
  Receive Date: 20250905
  Receipt Date: 20250905
  Transmission Date: 20251020
  Serious: Yes (Life-Threatening, Hospitalization)
  Sender: BIOGEN
  Company Number: None

PATIENT
  Age: 39 Year
  Sex: Male
  Weight: 39 kg

DRUGS (1)
  1. SPINRAZA [Suspect]
     Active Substance: NUSINERSEN
     Indication: Spinal muscular atrophy
     Route: 050
     Dates: start: 20200519, end: 20211130

REACTIONS (14)
  - Headache [Recovered/Resolved]
  - Pyrexia [Recovered/Resolved]
  - Asthenia [Recovered/Resolved]
  - Condition aggravated [Recovered/Resolved]
  - Decreased appetite [Recovered/Resolved]
  - Nuchal rigidity [Recovered/Resolved]
  - Leukocytosis [Recovered/Resolved]
  - Hyponatraemia [Recovered/Resolved]
  - Hypokalaemia [Recovered/Resolved]
  - Blood creatinine decreased [Recovered/Resolved]
  - Blood urea decreased [Recovered/Resolved]
  - Pleocytosis [Recovered/Resolved]
  - CSF protein increased [Recovered/Resolved]
  - CSF glucose decreased [Recovered/Resolved]

NARRATIVE: CASE EVENT DATE: 20211201
